FAERS Safety Report 7486320-5 (Version None)
Quarter: 2011Q2

REPORT INFORMATION
  Report Type: 
  Country: None (occurrence: None)
  Receive Date: 20110517
  Receipt Date: 20110506
  Transmission Date: 20111010
  Serious: Yes (Other)
  Sender: FDA-Public Use
  Company Number: IL-JNJFOC-20110503704

PATIENT
  Age: 76 Year
  Sex: Female

DRUGS (12)
  1. OFLOXACIN [Concomitant]
     Indication: ILL-DEFINED DISORDER
     Route: 048
     Dates: start: 20110502
  2. AQUA CREAM [Concomitant]
     Indication: ILL-DEFINED DISORDER
     Route: 061
  3. SALICYLIC ACID W/SULFUR [Concomitant]
     Indication: ILL-DEFINED DISORDER
     Route: 061
     Dates: start: 20110501
  4. CARDILOC [Concomitant]
     Indication: ILL-DEFINED DISORDER
     Route: 048
  5. STELARA [Suspect]
     Indication: PSORIASIS
     Route: 058
     Dates: start: 20100126, end: 20100901
  6. BETACORTEN [Concomitant]
     Indication: ILL-DEFINED DISORDER
     Route: 061
     Dates: start: 20110506
  7. PRAMIN [Concomitant]
     Indication: ILL-DEFINED DISORDER
     Route: 048
     Dates: start: 20110507
  8. SIMOVIL [Concomitant]
     Route: 048
     Dates: start: 20110501
  9. BONDORMIN [Concomitant]
     Indication: ILL-DEFINED DISORDER
     Route: 048
     Dates: start: 20110501
  10. ASPIRIN [Concomitant]
     Indication: ILL-DEFINED DISORDER
     Route: 048
     Dates: start: 20110501
  11. COAL TAR [Concomitant]
     Indication: ILL-DEFINED DISORDER
     Route: 061
     Dates: start: 20110508
  12. GLUCOPHAGE [Concomitant]
     Route: 048
     Dates: start: 20110501

REACTIONS (2)
  - PSORIASIS [None]
  - LYMPHOMA CUTIS [None]
